FAERS Safety Report 25079654 (Version 2)
Quarter: 2025Q3

REPORT INFORMATION
  Report Type: Spontaneous
  Country: CA (occurrence: CA)
  Receive Date: 20250314
  Receipt Date: 20250724
  Transmission Date: 20251020
  Serious: Yes (Hospitalization)
  Sender: LUNDBECK
  Company Number: CA-LUNDBECK-DKLU4011756

PATIENT
  Age: 20 Year
  Sex: Male

DRUGS (27)
  1. MEMANTINE [Suspect]
     Active Substance: MEMANTINE
     Indication: Lennox-Gastaut syndrome
  2. MEMANTINE [Suspect]
     Active Substance: MEMANTINE
     Indication: Early infantile epileptic encephalopathy with burst-suppression
  3. MEMANTINE [Suspect]
     Active Substance: MEMANTINE
     Indication: Tonic convulsion
  4. CLOBAZAM [Suspect]
     Active Substance: CLOBAZAM
     Indication: Lennox-Gastaut syndrome
  5. CLOBAZAM [Suspect]
     Active Substance: CLOBAZAM
     Indication: Early infantile epileptic encephalopathy with burst-suppression
  6. CLOBAZAM [Suspect]
     Active Substance: CLOBAZAM
     Indication: Tonic convulsion
  7. TOPIRAMATE [Suspect]
     Active Substance: TOPIRAMATE
     Indication: Lennox-Gastaut syndrome
  8. TOPIRAMATE [Suspect]
     Active Substance: TOPIRAMATE
     Indication: Early infantile epileptic encephalopathy with burst-suppression
  9. TOPIRAMATE [Suspect]
     Active Substance: TOPIRAMATE
     Indication: Tonic convulsion
  10. LEVETIRACETAM [Suspect]
     Active Substance: LEVETIRACETAM
     Indication: Lennox-Gastaut syndrome
  11. LEVETIRACETAM [Suspect]
     Active Substance: LEVETIRACETAM
     Indication: Early infantile epileptic encephalopathy with burst-suppression
  12. LEVETIRACETAM [Suspect]
     Active Substance: LEVETIRACETAM
     Indication: Tonic convulsion
  13. LAMOTRIGINE [Suspect]
     Active Substance: LAMOTRIGINE
     Indication: Lennox-Gastaut syndrome
  14. LAMOTRIGINE [Suspect]
     Active Substance: LAMOTRIGINE
     Indication: Early infantile epileptic encephalopathy with burst-suppression
  15. LAMOTRIGINE [Suspect]
     Active Substance: LAMOTRIGINE
     Indication: Tonic convulsion
  16. CARBAMAZEPINE [Suspect]
     Active Substance: CARBAMAZEPINE
     Indication: Lennox-Gastaut syndrome
  17. CARBAMAZEPINE [Suspect]
     Active Substance: CARBAMAZEPINE
     Indication: Early infantile epileptic encephalopathy with burst-suppression
  18. CARBAMAZEPINE [Suspect]
     Active Substance: CARBAMAZEPINE
     Indication: Tonic convulsion
  19. CLONAZEPAM [Suspect]
     Active Substance: CLONAZEPAM
     Indication: Early infantile epileptic encephalopathy with burst-suppression
  20. CLONAZEPAM [Suspect]
     Active Substance: CLONAZEPAM
     Indication: Lennox-Gastaut syndrome
  21. CLONAZEPAM [Suspect]
     Active Substance: CLONAZEPAM
     Indication: Tonic convulsion
  22. PERAMPANEL [Suspect]
     Active Substance: PERAMPANEL
     Indication: Early infantile epileptic encephalopathy with burst-suppression
     Route: 048
  23. PERAMPANEL [Suspect]
     Active Substance: PERAMPANEL
     Indication: Lennox-Gastaut syndrome
  24. PERAMPANEL [Suspect]
     Active Substance: PERAMPANEL
     Indication: Tonic convulsion
  25. VALPROIC ACID [Suspect]
     Active Substance: VALPROIC ACID
     Indication: Early infantile epileptic encephalopathy with burst-suppression
  26. VALPROIC ACID [Suspect]
     Active Substance: VALPROIC ACID
     Indication: Lennox-Gastaut syndrome
  27. VALPROIC ACID [Suspect]
     Active Substance: VALPROIC ACID
     Indication: Tonic convulsion

REACTIONS (2)
  - Drug ineffective [Unknown]
  - Product use in unapproved indication [Unknown]
